FAERS Safety Report 12929516 (Version 1)
Quarter: 2016Q4

REPORT INFORMATION
  Report Type: Spontaneous
  Country: ZA (occurrence: ZA)
  Receive Date: 20161110
  Receipt Date: 20161110
  Transmission Date: 20170207
  Serious: Yes (Life-Threatening)
  Sender: FDA-Public Use
  Company Number: ZA-GLAXOSMITHKLINE-ZA2016GSK163158

PATIENT
  Sex: Male

DRUGS (2)
  1. LAMICTIN [Suspect]
     Active Substance: LAMOTRIGINE
     Dosage: 25 UNK, UNK
  2. LAMICTIN [Suspect]
     Active Substance: LAMOTRIGINE
     Dosage: 10 MG, UNK

REACTIONS (3)
  - Drug ineffective [Unknown]
  - Disturbance in attention [Unknown]
  - Anger [Unknown]
